FAERS Safety Report 9909100 (Version 1)
Quarter: 2014Q1

REPORT INFORMATION
  Report Type: Spontaneous
  Country: US (occurrence: US)
  Receive Date: 20140219
  Receipt Date: 20140219
  Transmission Date: 20141002
  Serious: Yes (Other)
  Sender: FDA-Public Use
  Company Number: US-NAPPMUNDI-USA-2014-0111220

PATIENT
  Age: 49 Year
  Sex: Female

DRUGS (3)
  1. DILAUDID INJECTION [Suspect]
     Indication: PAIN
     Dosage: UNK, SINGLE
     Route: 042
     Dates: start: 20140209, end: 20140209
  2. ATIVAN [Concomitant]
     Indication: ANXIETY
     Dosage: 1 UNK, SINGLE
     Route: 042
     Dates: start: 20140209, end: 20140209
  3. PROTONIX [Concomitant]
     Indication: ABDOMINAL PAIN UPPER
     Dosage: 1 UNK, SINGLE
     Route: 042
     Dates: start: 20140209, end: 20140209

REACTIONS (5)
  - Supraventricular tachycardia [Recovered/Resolved]
  - Blood pressure increased [Unknown]
  - Dizziness [Recovered/Resolved]
  - Pruritus [Unknown]
  - Chills [Unknown]
